FAERS Safety Report 7095810-9 (Version None)
Quarter: 2010Q4

REPORT INFORMATION
  Report Type: 
  Country: None (occurrence: None)
  Receive Date: 20101109
  Receipt Date: 20101109
  Transmission Date: 20110411
  Serious: No
  Sender: FDA-Public Use
  Company Number: None

PATIENT
  Age: 64 Year
  Sex: Male

DRUGS (3)
  1. REVLIMID [Suspect]
     Indication: MULTIPLE MYELOMA
     Dosage: REVLIMID 25MG DAILY X21D/28D ORALLY
     Route: 048
     Dates: start: 20100101, end: 20101001
  2. LORAZEPAM [Concomitant]
  3. DEXAMETHASONE [Concomitant]

REACTIONS (2)
  - BLOOD IMMUNOGLOBULIN G DECREASED [None]
  - HYPOAESTHESIA [None]
